FAERS Safety Report 17307306 (Version 1)
Quarter: 2020Q1

REPORT INFORMATION
  Report Type: Spontaneous
  Country: US (occurrence: US)
  Receive Date: 20200123
  Receipt Date: 20200123
  Transmission Date: 20200409
  Serious: No
  Sender: FDA-Public Use
  Company Number: US-ASTRAZENECA-2020SE11115

PATIENT
  Sex: Male
  Weight: 5.4 kg

DRUGS (6)
  1. ALBUTEROL. [Concomitant]
     Active Substance: ALBUTEROL
  2. SYNAGIS [Suspect]
     Active Substance: PALIVIZUMAB
     Indication: PREMATURE BABY
     Route: 030
  3. ACETAMINOPHEN. [Concomitant]
     Active Substance: ACETAMINOPHEN
  4. COLLAGENASE [Concomitant]
     Active Substance: COLLAGENASE CLOSTRIDIUM HISTOLYTICUM
  5. SYNAGIS [Suspect]
     Active Substance: PALIVIZUMAB
     Indication: ARTERIAL DISORDER
     Route: 030
  6. BACITRACIN. [Concomitant]
     Active Substance: BACITRACIN

REACTIONS (1)
  - Influenza [Unknown]
